FAERS Safety Report 12827313 (Version 2)
Quarter: 2016Q4

REPORT INFORMATION
  Report Type: Spontaneous
  Country: BR (occurrence: BR)
  Receive Date: 20161007
  Receipt Date: 20161026
  Transmission Date: 20170207
  Serious: No
  Sender: FDA-Public Use
  Company Number: BR-VALIDUS PHARMACEUTICALS LLC-BR-2016VAL002801

PATIENT

DRUGS (1)
  1. PARLODEL [Suspect]
     Active Substance: BROMOCRIPTINE MESYLATE
     Indication: BLOOD PROLACTIN DECREASED
     Dosage: 0.5 DF, QHS
     Route: 048

REACTIONS (5)
  - Head discomfort [Not Recovered/Not Resolved]
  - Irritability [Recovering/Resolving]
  - Anxiety [Recovering/Resolving]
  - Psychiatric symptom [Recovering/Resolving]
  - Drug prescribing error [Unknown]
